FAERS Safety Report 25646563 (Version 1)
Quarter: 2025Q3

REPORT INFORMATION
  Report Type: Spontaneous
  Country: CN (occurrence: CN)
  Receive Date: 20250805
  Receipt Date: 20250805
  Transmission Date: 20251021
  Serious: Yes (Life-Threatening)
  Sender: PURDUE
  Company Number: CN-NAPPMUNDI-GBR-2025-0127727

PATIENT
  Age: 53 Year
  Sex: Female
  Weight: 40 kg

DRUGS (1)
  1. MORPHINE SULFATE [Suspect]
     Active Substance: MORPHINE SULFATE
     Indication: Analgesic therapy
     Dosage: 50 MILLIGRAM, BID
     Route: 048
     Dates: start: 20250726, end: 20250727

REACTIONS (3)
  - Respiratory depression [Recovering/Resolving]
  - Miosis [Recovering/Resolving]
  - Blood pressure decreased [Recovering/Resolving]

NARRATIVE: CASE EVENT DATE: 20250727
